FAERS Safety Report 15789644 (Version 2)
Quarter: 2019Q1

REPORT INFORMATION
  Report Type: Spontaneous
  Country: US (occurrence: US)
  Receive Date: 20190104
  Receipt Date: 20190204
  Transmission Date: 20190417
  Serious: No
  Sender: FDA-Public Use
  Company Number: US-ASTRAZENECA-2018SF62683

PATIENT
  Age: 77 Year
  Sex: Female
  Weight: 72.1 kg

DRUGS (2)
  1. SYMBICORT [Suspect]
     Active Substance: BUDESONIDE\FORMOTEROL FUMARATE DIHYDRATE
     Indication: CHRONIC OBSTRUCTIVE PULMONARY DISEASE
     Dosage: 160/4.5 MCG, 2 PUFFS, TWICE A DAY
     Route: 055
  2. MEDICINE TO STOP SMOKING [Concomitant]

REACTIONS (8)
  - Body height decreased [Unknown]
  - Device failure [Unknown]
  - Dyspnoea [Unknown]
  - Memory impairment [Unknown]
  - Glaucoma [Unknown]
  - Wrong technique in device usage process [Unknown]
  - Weight fluctuation [Unknown]
  - Device malfunction [Unknown]
